FAERS Safety Report 6983418-2 (Version None)
Quarter: 2010Q3

REPORT INFORMATION
  Report Type: 
  Country: None (occurrence: None)
  Receive Date: 20100914
  Receipt Date: 20100914
  Transmission Date: 20110219
  Serious: Yes (Hospitalization)
  Sender: FDA-Public Use
  Company Number: None

PATIENT
  Sex: Female
  Weight: 49.5 kg

DRUGS (2)
  1. CISPLATIN [Suspect]
     Dosage: 479 MG
  2. ETOPOSIDE [Suspect]
     Dosage: 1803 MG

REACTIONS (8)
  - ANAEMIA [None]
  - COLITIS ISCHAEMIC [None]
  - FEBRILE NEUTROPENIA [None]
  - GARDNERELLA TEST POSITIVE [None]
  - HYPOKALAEMIA [None]
  - HYPONATRAEMIA [None]
  - RECTAL HAEMORRHAGE [None]
  - SINUS TACHYCARDIA [None]
